FAERS Safety Report 6283290-2 (Version None)
Quarter: 2009Q3

REPORT INFORMATION
  Report Type: 
  Country: None (occurrence: None)
  Receive Date: 20090724
  Receipt Date: 20090330
  Transmission Date: 20100115
  Serious: Yes (Death)
  Sender: FDA-Public Use
  Company Number: US-PFIZER INC-2009244090

PATIENT
  Age: 42 Year
  Sex: Male

DRUGS (6)
  1. VISTARIL [Suspect]
  2. ZYPREXA [Suspect]
     Dosage: 20 MG, 1X/DAY
  3. SEROQUEL [Suspect]
  4. LEXAPRO [Concomitant]
  5. LUNESTA [Concomitant]
  6. DEPAKOTE [Concomitant]

REACTIONS (1)
  - DRUG TOXICITY [None]
